FAERS Safety Report 19126536 (Version 1)
Quarter: 2021Q2

REPORT INFORMATION
  Report Type: Spontaneous
  Country: US (occurrence: US)
  Receive Date: 20210412
  Receipt Date: 20210412
  Transmission Date: 20210717
  Serious: Yes (Death)
  Sender: FDA-Public Use
  Company Number: US-PFIZER INC-2021364809

PATIENT
  Age: 54 Year
  Sex: Male
  Weight: 88.44 kg

DRUGS (1)
  1. SUTENT [Suspect]
     Active Substance: SUNITINIB MALATE
     Indication: GASTROINTESTINAL STROMAL TUMOUR
     Dosage: 50 MG, CYCLIC (1 CAP DAILY DAYS 1?28 OF 42 DAY CYCLE)
     Route: 048

REACTIONS (1)
  - Death [Fatal]
